FAERS Safety Report 17479402 (Version 1)
Quarter: 2020Q1

REPORT INFORMATION
  Report Type: Spontaneous
  Country: NL (occurrence: NL)
  Receive Date: 20200228
  Receipt Date: 20200228
  Transmission Date: 20200409
  Serious: Yes (Life-Threatening, Other)
  Sender: FDA-Public Use
  Company Number: NL-MYLANLABS-2020M1022758

PATIENT
  Sex: Female
  Weight: 64 kg

DRUGS (2)
  1. LACTULOSE. [Concomitant]
     Active Substance: LACTULOSE
     Dosage: UNK
  2. NORTRIPTYLINE [Suspect]
     Active Substance: NORTRIPTYLINE
     Indication: DEPRESSION
     Dosage: TABL 25MG, 1X DAAGS, 3 TABL
     Dates: start: 2017, end: 20200103

REACTIONS (2)
  - Therapeutic response unexpected [Unknown]
  - Depression [Recovered/Resolved]
